FAERS Safety Report 7831258-4 (Version None)
Quarter: 2011Q4

REPORT INFORMATION
  Report Type: 
  Country: None (occurrence: None)
  Receive Date: 20111021
  Receipt Date: 20111013
  Transmission Date: 20120403
  Serious: Yes (Hospitalization)
  Sender: FDA-Public Use
  Company Number: JP-EISAI INC-E3810-05006-SPO-JP

PATIENT
  Age: 64 Year
  Sex: Male

DRUGS (9)
  1. AMOXICILLIN [Suspect]
     Indication: HELICOBACTER INFECTION
     Route: 048
     Dates: start: 20110204, end: 20110210
  2. ACIPHEX [Suspect]
     Indication: HELICOBACTER INFECTION
     Route: 048
     Dates: start: 20110204, end: 20110210
  3. CELECOXIB [Suspect]
     Route: 048
     Dates: start: 20110601, end: 20110617
  4. LOXONIN [Suspect]
     Dosage: UNKNOWN
     Route: 048
     Dates: end: 20110601
  5. TROXSIN [Concomitant]
     Route: 048
     Dates: end: 20110514
  6. FAMOTIDINE [Suspect]
     Dosage: UNKNOWN
     Route: 048
     Dates: start: 20080101
  7. CELECOXIB [Suspect]
     Indication: OSTEOARTHRITIS
     Route: 048
     Dates: start: 20110507, end: 20110513
  8. CLARITHROMYCIN [Concomitant]
     Route: 048
     Dates: start: 20110204, end: 20110210
  9. PRAVASTATIN SODIUM [Concomitant]
     Route: 048

REACTIONS (1)
  - LIVER DISORDER [None]
